FAERS Safety Report 4395742-0 (Version None)
Quarter: 2004Q3

REPORT INFORMATION
  Report Type: 
  Country: None (occurrence: None)
  Receive Date: 20040707
  Receipt Date: 20040628
  Transmission Date: 20050211
  Serious: Yes (Life-Threatening)
  Sender: FDA-Public Use
  Company Number: 2004CG01252

PATIENT
  Age: 8 Month
  Sex: Female
  Weight: 5.7 kg

DRUGS (8)
  1. NAROPIN [Suspect]
     Dosage: 1 MG ONCE, ED
     Route: 008
     Dates: start: 20040405, end: 20040405
  2. SUFENTANIL [Suspect]
     Dosage: 12.5 MG ONCE; ED
     Route: 008
     Dates: start: 20040405, end: 20040405
  3. MARCAINE HCL W/ EPINEPHRINE [Concomitant]
  4. XYLOCAINE W/ EPINEPHRINE [Concomitant]
  5. PROPOFOL [Concomitant]
  6. KETAMINE HCL [Concomitant]
  7. TIBERAL [Concomitant]
  8. AUGMENTIN '125' [Concomitant]

REACTIONS (5)
  - ATRIOVENTRICULAR BLOCK [None]
  - BRADYCARDIA [None]
  - CARDIAC ARREST [None]
  - OXYGEN SATURATION DECREASED [None]
  - PROCEDURAL COMPLICATION [None]
